FAERS Safety Report 9952198 (Version 2)
Quarter: 2014Q1

REPORT INFORMATION
  Report Type: Spontaneous
  Country: US (occurrence: US)
  Receive Date: 20140304
  Receipt Date: 20140304
  Transmission Date: 20141002
  Serious: No
  Sender: FDA-Public Use
  Company Number: US-PFIZER INC-2014025943

PATIENT
  Age: 48 Year
  Sex: Female

DRUGS (13)
  1. INLYTA [Suspect]
     Indication: METASTATIC RENAL CELL CARCINOMA
     Dosage: 5 MG, 2X/DAY (Q 12 HRS WITH A FULL GLASS) (8 OZ WATER)
     Route: 048
     Dates: start: 20130409, end: 20140117
  2. MS CONTIN [Concomitant]
     Dosage: 30 MG, 2X/DAY (TAKE 1 TABLET EVERY 12 HOURS )
     Route: 048
  3. XANAX [Concomitant]
     Indication: ANXIETY
     Dosage: 1 MG, 2X/DAY
  4. LORCET [Concomitant]
     Indication: PAIN
     Dosage: HYDROCODONE BITARTRATE 10 MG, PARACETAMOL650MG (TAKE 1 TABLET EVERY 4-6 HOURS AS NEEDED)
     Route: 048
  5. AFINITOR [Concomitant]
     Dosage: 10 MG, 1X/DAY
     Route: 048
  6. LEVOTHYROXINE SODIUM [Concomitant]
     Dosage: 137 UG, 1X/DAY
     Route: 048
  7. LOTRIMIN [Concomitant]
     Dosage: UNK (EVERY DAY IN THE MORNING AND EVENING)
     Route: 061
  8. PROMETHAZINE HYDROCHLORIDE [Concomitant]
     Dosage: TAKE 0.5-1TABLET (12.5 MG), (EVERY 4-6 HOURS AS NEEDED)
     Route: 048
  9. ATIVAN [Concomitant]
     Dosage: 1 TO 2 TABS BEFORE PROCEDURES
  10. FERROUS SULFATE [Concomitant]
     Dosage: 325 MG, 1X/DAY
     Route: 048
  11. IRON [Concomitant]
     Dosage: 65 MG, UNK
  12. OMEPRAZOLE [Concomitant]
     Dosage: 20 MG, 1X/DAY (BEFORE A MEAL)
     Route: 048
  13. NU-DERM TOLEREEN [Concomitant]
     Dosage: BID AS NEEDED

REACTIONS (2)
  - Disease progression [Unknown]
  - Metastatic renal cell carcinoma [Unknown]
